FAERS Safety Report 4283363-X (Version None)
Quarter: 2004Q1

REPORT INFORMATION
  Report Type: 
  Country: None (occurrence: None)
  Receive Date: 20040202
  Receipt Date: 20040123
  Transmission Date: 20041129
  Serious: Yes (Other)
  Sender: FDA-Public Use
  Company Number: PHBS2004CA01257

PATIENT

DRUGS (1)
  1. AREDIA [Suspect]
     Dosage: 90 MG, UNK

REACTIONS (1)
  - NEPHROTIC SYNDROME [None]
